FAERS Safety Report 8060567-1 (Version None)
Quarter: 2012Q1

REPORT INFORMATION
  Report Type: 
  Country: None (occurrence: None)
  Receive Date: 20120120
  Receipt Date: 20120117
  Transmission Date: 20120608
  Serious: Yes (Disabling, Other)
  Sender: FDA-Public Use
  Company Number: PHHY2012CL004324

PATIENT
  Sex: Male

DRUGS (4)
  1. CLOZAPINE [Suspect]
     Dosage: 50 MG/DAY (FOR TWO WEEKS)
     Route: 048
  2. CLOZAPINE [Suspect]
     Dosage: 75 MG/DAY (FOR 1 WEEK)
     Route: 048
  3. CLOZAPINE [Suspect]
     Indication: SCHIZOPHRENIA
     Dosage: 25 MG/DAY (FOR TWO WEEKS)
     Route: 048
     Dates: start: 20111205
  4. CLOZAPINE [Suspect]
     Dosage: 100 MG, DAILY
     Route: 048

REACTIONS (2)
  - GASTROINTESTINAL INFECTION [None]
  - PYREXIA [None]
